FAERS Safety Report 6646445-0 (Version None)
Quarter: 2010Q1

REPORT INFORMATION
  Report Type: 
  Country: None (occurrence: None)
  Receive Date: 20100322
  Receipt Date: 20100322
  Transmission Date: 20100710
  Serious: Yes (Disabling)
  Sender: FDA-Public Use
  Company Number: None

PATIENT
  Age: 56 Year
  Sex: Male
  Weight: 81.6475 kg

DRUGS (1)
  1. DEPAKOTE [Suspect]
     Indication: BIPOLAR I DISORDER
     Dosage: 250 MG. 4 TIMES A DAY
     Dates: start: 19940101

REACTIONS (6)
  - DIABETES MELLITUS [None]
  - DRUG LEVEL DECREASED [None]
  - FEELING ABNORMAL [None]
  - HEPATIC ENZYME ABNORMAL [None]
  - INCORRECT DOSE ADMINISTERED [None]
  - NEPHROLITHIASIS [None]
